FAERS Safety Report 7822030-X (Version None)
Quarter: 2011Q4

REPORT INFORMATION
  Report Type: 
  Country: None (occurrence: None)
  Receive Date: 20111018
  Receipt Date: 20111010
  Transmission Date: 20120403
  Serious: Yes (Other)
  Sender: FDA-Public Use
  Company Number: PHHY2011DE79680

PATIENT
  Sex: Female
  Weight: 74 kg

DRUGS (7)
  1. ARIMIDEX [Concomitant]
     Dosage: 1 DF, QD
     Route: 048
     Dates: start: 20100209
  2. BISOBETA [Concomitant]
     Dosage: 25 MG, 1/2-0-1/2
     Dates: start: 20100311
  3. SIMVASTATIN [Concomitant]
     Dosage: 60 MG, 0-0-1/2
     Dates: start: 20100311
  4. ZOMETA [Suspect]
     Indication: PROPHYLAXIS
     Dosage: 4 MG/ 5ML EVERY 4 WEEKS
     Route: 042
     Dates: start: 20100209
  5. ZOMETA [Suspect]
     Dosage: 4 MG/ 5ML EVERY 4 WEEKS
     Route: 042
     Dates: end: 20100831
  6. DICLO [Concomitant]
     Dosage: 25 MG, 1-0-1
     Dates: start: 20100311
  7. ENALAPRIL MALEATE [Concomitant]
     Dosage: 10 MG, 1-0-1/2
     Dates: start: 20100311

REACTIONS (3)
  - BLOOD CREATINE INCREASED [None]
  - GENERAL PHYSICAL HEALTH DETERIORATION [None]
  - CREATININE RENAL CLEARANCE DECREASED [None]
